FAERS Safety Report 8362471-8 (Version None)
Quarter: 2012Q2

REPORT INFORMATION
  Report Type: 
  Country: None (occurrence: None)
  Receive Date: 20120514
  Receipt Date: 20120514
  Transmission Date: 20120825
  Serious: Yes (Hospitalization)
  Sender: FDA-Public Use
  Company Number: None

PATIENT
  Age: 59 Year
  Sex: Male
  Weight: 96 kg

DRUGS (2)
  1. HYDROCHLOROTHIAZIDE [Suspect]
     Indication: HYPERTENSION
     Dosage: 12.5 MG DAILY PO
     Route: 048
     Dates: start: 20120408, end: 20120510
  2. SERTRALINE HYDROCHLORIDE [Suspect]
     Indication: ANXIETY
     Dosage: 50 MG DAILY PO
     Route: 048
     Dates: start: 20120508, end: 20120510

REACTIONS (4)
  - LIP SWELLING [None]
  - MUSCULOSKELETAL PAIN [None]
  - CHEST PAIN [None]
  - PRURITUS [None]
